FAERS Safety Report 9970147 (Version 1)
Quarter: 2014Q1

REPORT INFORMATION
  Report Type: Spontaneous
  Country: US (occurrence: None)
  Receive Date: 20140214
  Receipt Date: 20140214
  Transmission Date: 20141002
  Serious: Yes (Other)
  Sender: FDA-Public Use
  Company Number: CO-OR-US-2013-184

PATIENT
  Age: 9 Month
  Sex: Male

DRUGS (3)
  1. PREDNISOLONE (PREDNISOLONE) [Suspect]
     Indication: INFANTILE SPASMS
     Dosage: STARTING DOSE WAS 40 MG PER DAY WHICH WAS INCREASED TO 60 MG PER DAY WHEN RESPONSE WAS SUBOPTIMAL
  2. LEVETIRACETAM (LEVETIRACETAM) [Concomitant]
  3. CLONAZEPAM (CLONAZEPAM) [Concomitant]

REACTIONS (3)
  - Hypertension [None]
  - Cushingoid [None]
  - Off label use [None]
